FAERS Safety Report 17816846 (Version 7)
Quarter: 2022Q2

REPORT INFORMATION
  Report Type: Report from Study
  Country: US (occurrence: US)
  Receive Date: 20200522
  Receipt Date: 20220512
  Transmission Date: 20220721
  Serious: Yes (Life-Threatening, Other)
  Sender: FDA-Public Use
  Company Number: US-NOVARTISPH-NVSC2020US141300

PATIENT
  Age: 22 Year
  Sex: Female
  Weight: 69.9 kg

DRUGS (1)
  1. KYMRIAH [Suspect]
     Active Substance: TISAGENLECLEUCEL
     Indication: Acute lymphocytic leukaemia recurrent
     Dosage: 80000000 DF, ONCE/SINGLE
     Route: 042
     Dates: start: 20200424, end: 20200424

REACTIONS (19)
  - Hypofibrinogenaemia [Unknown]
  - Immune effector cell-associated neurotoxicity syndrome [Unknown]
  - Insomnia [Unknown]
  - Bradycardia [Unknown]
  - Neurotoxicity [Unknown]
  - Disseminated intravascular coagulation [Unknown]
  - Cytokine release syndrome [Recovered/Resolved]
  - Pyrexia [Unknown]
  - Hypotension [Unknown]
  - Headache [Unknown]
  - Nausea [Unknown]
  - Vomiting [Unknown]
  - Hypoxia [Unknown]
  - Fatigue [Unknown]
  - Aspartate aminotransferase increased [Unknown]
  - Acute lymphocytic leukaemia recurrent [Not Recovered/Not Resolved]
  - Fungal infection [Unknown]
  - Blood alkaline phosphatase increased [Unknown]
  - Tachycardia [Unknown]

NARRATIVE: CASE EVENT DATE: 20200425
